FAERS Safety Report 7297401-3 (Version None)
Quarter: 2011Q1

REPORT INFORMATION
  Report Type: 
  Country: None (occurrence: None)
  Receive Date: 20110216
  Receipt Date: 20110207
  Transmission Date: 20110831
  Serious: Yes (Other)
  Sender: FDA-Public Use
  Company Number: GB-ELI_LILLY_AND_COMPANY-GB201012002497

PATIENT
  Age: 17 Year
  Sex: Male
  Weight: 54.6 kg

DRUGS (7)
  1. RISPERDONE [Concomitant]
     Indication: ATTENTION DEFICIT/HYPERACTIVITY DISORDER
     Dosage: 1 MG, EACH MORNING
  2. CANNABIS [Concomitant]
  3. MELATONIN [Concomitant]
     Dosage: 3 MG, EACH EVENING
  4. ALCOHOL [Concomitant]
  5. STRATTERA [Suspect]
     Indication: ATTENTION DEFICIT/HYPERACTIVITY DISORDER
     Dosage: 1 D/F, UNK
     Route: 048
     Dates: start: 20100708, end: 20101206
  6. RISPERDONE [Concomitant]
     Dosage: 0.5 MG, EACH EVENING
  7. CONCERTA [Concomitant]
     Dosage: 36 MG, UNKNOWN
     Dates: start: 20101121

REACTIONS (5)
  - SUICIDAL IDEATION [None]
  - AGGRESSION [None]
  - MOOD ALTERED [None]
  - DEPRESSED MOOD [None]
  - AFFECT LABILITY [None]
